FAERS Safety Report 12082421 (Version 1)
Quarter: 2016Q1

REPORT INFORMATION
  Report Type: Report from Study
  Country: BR (occurrence: BR)
  Receive Date: 20160217
  Receipt Date: 20160217
  Transmission Date: 20160526
  Serious: Yes (Hospitalization, Other)
  Sender: FDA-Public Use
  Company Number: BR-ROCHE-1672567

PATIENT
  Sex: Female
  Weight: 71 kg

DRUGS (3)
  1. SIMVASTATIN. [Concomitant]
     Active Substance: SIMVASTATIN
     Indication: HYPERTENSION
     Dosage: EVENING
     Route: 065
  2. ACTEMRA [Suspect]
     Active Substance: TOCILIZUMAB
     Indication: RHEUMATOID ARTHRITIS
     Route: 042
     Dates: start: 20151001, end: 20151113
  3. ENALAPRIL [Concomitant]
     Active Substance: ENALAPRIL
     Dosage: MORNING
     Route: 065

REACTIONS (3)
  - Corneal disorder [Unknown]
  - Speech disorder [Not Recovered/Not Resolved]
  - Pain [Not Recovered/Not Resolved]
